FAERS Safety Report 23261832 (Version 3)
Quarter: 2024Q2

REPORT INFORMATION
  Report Type: Report from Study
  Country: CA (occurrence: CA)
  Receive Date: 20231205
  Receipt Date: 20240405
  Transmission Date: 20240715
  Serious: Yes (Other)
  Sender: FDA-Public Use
  Company Number: CA-002147023-NVSC2023CA098175

PATIENT
  Age: 51 Year
  Sex: Female

DRUGS (4)
  1. COSENTYX [Suspect]
     Active Substance: SECUKINUMAB
     Indication: Ankylosing spondylitis
     Dosage: 150 MG, QMO
     Route: 058
     Dates: start: 20230330
  2. COSENTYX [Suspect]
     Active Substance: SECUKINUMAB
     Dosage: 300 MG, QMO
     Route: 058
  3. VOLTAREN [Concomitant]
     Active Substance: DICLOFENAC SODIUM
     Indication: Product used for unknown indication
     Dosage: UNK
     Route: 061
     Dates: start: 2013
  4. CORTISONE [Concomitant]
     Active Substance: CORTISONE
     Indication: Product used for unknown indication
     Dosage: UNK (ON FACET JOINT)
     Route: 065
     Dates: start: 202308

REACTIONS (18)
  - Lower respiratory tract infection [Unknown]
  - Body temperature decreased [Unknown]
  - Pain [Unknown]
  - Dizziness [Unknown]
  - Neck pain [Unknown]
  - Panic attack [Unknown]
  - Stress [Unknown]
  - Nausea [Unknown]
  - Headache [Unknown]
  - Fatigue [Unknown]
  - Pruritus [Unknown]
  - Back pain [Unknown]
  - Hypersensitivity [Unknown]
  - Chest discomfort [Unknown]
  - Dyspnoea [Unknown]
  - Arthralgia [Unknown]
  - Malaise [Unknown]
  - Illness [Unknown]

NARRATIVE: CASE EVENT DATE: 20230401
